FAERS Safety Report 8138895-0 (Version None)
Quarter: 2012Q1

REPORT INFORMATION
  Report Type: 
  Country: None (occurrence: None)
  Receive Date: 20120215
  Receipt Date: 20120207
  Transmission Date: 20120608
  Serious: Yes (Other)
  Sender: FDA-Public Use
  Company Number: US-ELI_LILLY_AND_COMPANY-US201202003354

PATIENT
  Age: 41 Year
  Sex: Female
  Weight: 58.503 kg

DRUGS (5)
  1. REMODULIN [Concomitant]
     Indication: PULMONARY ARTERIAL HYPERTENSION
     Dosage: UNK
     Route: 042
     Dates: start: 20060123
  2. COUMADIN [Concomitant]
  3. REVATIO [Concomitant]
  4. DIURETICS [Concomitant]
  5. ADCIRCA [Suspect]
     Dosage: UNK, UNKNOWN

REACTIONS (3)
  - HOSPICE CARE [None]
  - HYPERHIDROSIS [None]
  - PYREXIA [None]
